FAERS Safety Report 25157164 (Version 1)
Quarter: 2025Q2

REPORT INFORMATION
  Report Type: Spontaneous
  Country: LV (occurrence: LV)
  Receive Date: 20250403
  Receipt Date: 20250403
  Transmission Date: 20250716
  Serious: Yes (Other)
  Sender: TAKEDA
  Company Number: LV-TAKEDA-2025TUS032275

PATIENT
  Age: 53 Year
  Sex: Female

DRUGS (2)
  1. ALUNBRIG [Suspect]
     Active Substance: BRIGATINIB
     Indication: Lung adenocarcinoma
  2. ALUNBRIG [Suspect]
     Active Substance: BRIGATINIB

REACTIONS (2)
  - Metastases to lymph nodes [Unknown]
  - Dry skin [Unknown]
